FAERS Safety Report 10261640 (Version 1)
Quarter: 2014Q2

REPORT INFORMATION
  Report Type: Spontaneous
  Country: IT (occurrence: IT)
  Receive Date: 20140626
  Receipt Date: 20140626
  Transmission Date: 20141212
  Serious: Yes (Hospitalization)
  Sender: FDA-Public Use
  Company Number: PHHY2014IT078686

PATIENT
  Age: 73 Year
  Sex: Male

DRUGS (2)
  1. DONEPEZIL [Suspect]
     Dosage: 10 MG, QD
     Dates: start: 20140101, end: 20140419
  2. ACETYLSALICYLIC ACID [Suspect]
     Dosage: 100 MG, UNK

REACTIONS (1)
  - Syncope [Recovering/Resolving]
